FAERS Safety Report 22153200 (Version 20)
Quarter: 2024Q2

REPORT INFORMATION
  Report Type: Report from Study
  Country: US (occurrence: US)
  Receive Date: 20230329
  Receipt Date: 20240607
  Transmission Date: 20240716
  Serious: Yes (Other)
  Sender: FDA-Public Use
  Company Number: US-002147023-NVSC2023US073168

PATIENT
  Age: 57 Year
  Sex: Male

DRUGS (3)
  1. KESIMPTA [Suspect]
     Active Substance: OFATUMUMAB
     Indication: Product used for unknown indication
     Dosage: UNK, QMO (EVERY 28 DAYS)
     Route: 065
     Dates: start: 20230313
  2. KESIMPTA [Suspect]
     Active Substance: OFATUMUMAB
     Dosage: UNK (ALTERNATE DOSING Q 28 DAYS)
     Route: 065
     Dates: start: 20240131
  3. KESIMPTA [Suspect]
     Active Substance: OFATUMUMAB
     Dosage: 20 MG
     Route: 065

REACTIONS (12)
  - Neuropathy peripheral [Unknown]
  - Multiple sclerosis [Unknown]
  - Fall [Unknown]
  - Muscle tightness [Unknown]
  - Temperature intolerance [Not Recovered/Not Resolved]
  - Somnolence [Unknown]
  - Pain in extremity [Unknown]
  - Amnesia [Unknown]
  - Asthenia [Unknown]
  - Fatigue [Recovered/Resolved]
  - Therapeutic product effect decreased [Unknown]
  - Fatigue [Unknown]

NARRATIVE: CASE EVENT DATE: 20230313
